FAERS Safety Report 12846681 (Version 1)
Quarter: 2016Q4

REPORT INFORMATION
  Report Type: Spontaneous
  Country: US (occurrence: US)
  Receive Date: 20161014
  Receipt Date: 20161014
  Transmission Date: 20170207
  Serious: Yes (Other)
  Sender: FDA-Public Use
  Company Number: US-PFIZER INC-2016469936

PATIENT
  Sex: Female

DRUGS (3)
  1. IBRANCE [Suspect]
     Active Substance: PALBOCICLIB
     Dosage: 100 MG, CYCLIC, (IBRANCE 100 MG DAILY FOR 2 WEEKS ON AND 2 WEEKS OFF)
  2. IBRANCE [Suspect]
     Active Substance: PALBOCICLIB
     Dosage: 100 MG, DAILY  (IBRANCE 100 MG DAILY FOR 21 DAYS ON IN MAY)
  3. IBRANCE [Suspect]
     Active Substance: PALBOCICLIB
     Dosage: 125 MG, DAILY, (IBRANCE 125 MG DAILY FOR 21 DAYS)

REACTIONS (1)
  - Platelet count decreased [Recovered/Resolved]
